FAERS Safety Report 4766020-2 (Version None)
Quarter: 2005Q3

REPORT INFORMATION
  Report Type: 
  Country: None (occurrence: None)
  Receive Date: 20050912
  Receipt Date: 20050622
  Transmission Date: 20060218
  Serious: Yes (Hospitalization)
  Sender: FDA-Public Use
  Company Number: J200502064

PATIENT
  Age: 2 Year
  Sex: Male

DRUGS (1)
  1. SAWACILLIN [Suspect]
     Indication: LARYNGOPHARYNGITIS
     Route: 048
     Dates: start: 20050603, end: 20050608

REACTIONS (5)
  - COUGH [None]
  - ECZEMA [None]
  - ERYTHEMA MULTIFORME [None]
  - PRURITUS [None]
  - PYREXIA [None]
